FAERS Safety Report 10502731 (Version 2)
Quarter: 2014Q4

REPORT INFORMATION
  Report Type: Spontaneous
  Country: US (occurrence: US)
  Receive Date: 20141007
  Receipt Date: 20141106
  Transmission Date: 20150528
  Serious: Yes (Hospitalization, Other)
  Sender: FDA-Public Use
  Company Number: US-B.I. PHARMACEUTICALS,INC./RIDGEFIELD-2014-BI-47229BP

PATIENT
  Age: 79 Year
  Sex: Female
  Weight: 99.33 kg

DRUGS (5)
  1. HCTZ [Concomitant]
     Active Substance: HYDROCHLOROTHIAZIDE
     Indication: PRODUCT USED FOR UNKNOWN INDICATION
     Route: 065
  2. PRADAXA [Suspect]
     Active Substance: DABIGATRAN ETEXILATE MESYLATE
     Indication: PRODUCT USED FOR UNKNOWN INDICATION
     Dosage: 150 MG
     Route: 048
     Dates: end: 2012
  3. XALATAN [Concomitant]
     Active Substance: LATANOPROST
     Indication: PRODUCT USED FOR UNKNOWN INDICATION
     Route: 065
  4. SINGULAIR [Concomitant]
     Active Substance: MONTELUKAST SODIUM
     Indication: PRODUCT USED FOR UNKNOWN INDICATION
     Route: 065
  5. DIOVAN [Concomitant]
     Active Substance: VALSARTAN
     Indication: PRODUCT USED FOR UNKNOWN INDICATION
     Route: 065

REACTIONS (16)
  - Haemorrhagic transformation stroke [Not Recovered/Not Resolved]
  - Chronic respiratory failure [Unknown]
  - Generalised oedema [Unknown]
  - Asthma [Unknown]
  - Osteopenia [Unknown]
  - Haematuria [Unknown]
  - Fungaemia [Unknown]
  - Cardiomegaly [Unknown]
  - Cerebral infarction [Not Recovered/Not Resolved]
  - Sinus node dysfunction [Unknown]
  - Sinusitis [Unknown]
  - Atrial fibrillation [Unknown]
  - Thrombophlebitis superficial [Unknown]
  - Meningioma [Unknown]
  - Osteoarthritis [Unknown]
  - Pneumonia [Unknown]

NARRATIVE: CASE EVENT DATE: 2011
